FAERS Safety Report 21794121 (Version 1)
Quarter: 2022Q4

REPORT INFORMATION
  Report Type: Report from Study
  Country: US (occurrence: US)
  Receive Date: 20221229
  Receipt Date: 20221229
  Transmission Date: 20230113
  Serious: No
  Sender: FDA-Public Use
  Company Number: US-ABBVIE-4218693

PATIENT
  Sex: Female

DRUGS (5)
  1. HUMIRA [Suspect]
     Active Substance: ADALIMUMAB
     Indication: Rheumatoid arthritis
     Dosage: STRENGTH 40 MG
     Route: 058
  2. FOLIC ACID TAB 800MCG [Concomitant]
     Indication: Product used for unknown indication
     Dosage: 800MCG
     Route: 048
  3. METHOTREXATE [Concomitant]
     Active Substance: METHOTREXATE
     Indication: Product used for unknown indication
     Dosage: 2.5 MG
     Route: 048
  4. CALCIUM CITR TAB 315-200M [Concomitant]
     Indication: Product used for unknown indication
     Dosage: 315-200M
     Route: 048
  5. COVID vaccine [Concomitant]
     Indication: COVID-19 immunisation
     Dosage: ONE IN ONCE
     Route: 030

REACTIONS (1)
  - Rash [Unknown]
